FAERS Safety Report 10648237 (Version 1)
Quarter: 2014Q4

REPORT INFORMATION
  Report Type: Spontaneous
  Country: GB (occurrence: GB)
  Receive Date: 20141212
  Receipt Date: 20141212
  Transmission Date: 20150529
  Serious: Yes (Disabling)
  Sender: FDA-Public Use
  Company Number: GB-TEVA-527539ISR

PATIENT
  Age: 48 Year
  Sex: Female
  Weight: 75 kg

DRUGS (1)
  1. PROPRANOLOL [Suspect]
     Active Substance: PROPRANOLOL\PROPRANOLOL HYDROCHLORIDE
     Indication: HEADACHE
     Dosage: DON^T REMEMBER, PRESCRIPTION WAS TO START WITH ONE A DAY TO BUILD UP TO TWO A DAY. ONLY USED 4
     Route: 048
     Dates: start: 201408

REACTIONS (5)
  - Heart rate decreased [Recovered/Resolved]
  - Peripheral swelling [Not Recovered/Not Resolved]
  - Lacrimation increased [Unknown]
  - Urine analysis abnormal [Recovering/Resolving]
  - Discomfort [Unknown]

NARRATIVE: CASE EVENT DATE: 201408
